FAERS Safety Report 19978298 (Version 1)
Quarter: 2021Q4

REPORT INFORMATION
  Report Type: Spontaneous
  Country: US (occurrence: US)
  Receive Date: 20211020
  Receipt Date: 20211020
  Transmission Date: 20220303
  Serious: Yes (unspecified)
  Sender: FDA-Public Use
  Company Number: None

PATIENT
  Age: 52 Year
  Sex: Male
  Weight: 74 kg

DRUGS (1)
  1. ONCASPAR [Suspect]
     Active Substance: PEGASPARGASE
     Route: 041
     Dates: start: 20210930, end: 20210930

REACTIONS (3)
  - Dyspnoea [None]
  - Hyperhidrosis [None]
  - Therapy cessation [None]

NARRATIVE: CASE EVENT DATE: 20210930
